FAERS Safety Report 5515661-3 (Version None)
Quarter: 2007Q4

REPORT INFORMATION
  Report Type: 
  Country: None (occurrence: None)
  Receive Date: 20071113
  Receipt Date: 20070802
  Transmission Date: 20080405
  Serious: No
  Sender: FDA-Public Use
  Company Number: A0667907A

PATIENT
  Age: 73 Year
  Sex: Male

DRUGS (3)
  1. COREG [Suspect]
     Dosage: 12.5MG TWICE PER DAY
     Route: 048
     Dates: start: 20010330
  2. ATACAND [Concomitant]
  3. PRAVACHOL [Concomitant]

REACTIONS (1)
  - WEIGHT INCREASED [None]
